FAERS Safety Report 14940150 (Version 1)
Quarter: 2018Q2

REPORT INFORMATION
  Report Type: Spontaneous
  Country: AT (occurrence: AT)
  Receive Date: 20180525
  Receipt Date: 20180525
  Transmission Date: 20180711
  Serious: Yes (Death, Other)
  Sender: FDA-Public Use
  Company Number: AT-MYLANLABS-2018M1033951

PATIENT
  Sex: Male

DRUGS (8)
  1. TACROLIMUS. [Suspect]
     Active Substance: TACROLIMUS
     Indication: IMMUNOSUPPRESSANT DRUG THERAPY
     Route: 065
  2. BENDAMUSTINE HYDROCHLORIDE. [Suspect]
     Active Substance: BENDAMUSTINE HYDROCHLORIDE
     Indication: DIFFUSE LARGE B-CELL LYMPHOMA
     Dosage: AS A PART OF R-BENDA REGIMEN
     Route: 065
     Dates: start: 201104
  3. CYCLOPHOSPHAMIDE. [Suspect]
     Active Substance: CYCLOPHOSPHAMIDE
     Indication: DIFFUSE LARGE B-CELL LYMPHOMA
     Dosage: 5 CYCLES AS A PART OF R-CHOP REGIMEN
     Route: 065
     Dates: start: 201004
  4. MYCOPHENOLATE MOFETIL. [Suspect]
     Active Substance: MYCOPHENOLATE MOFETIL
     Indication: IMMUNOSUPPRESSANT DRUG THERAPY
     Route: 065
  5. RITUXIMAB. [Suspect]
     Active Substance: RITUXIMAB
     Indication: DIFFUSE LARGE B-CELL LYMPHOMA
     Dosage: 5 CYCLES AS A PART OF R-CHOP REGIMEN; THEN RITUXIMAB MAINTENANCE THERAPY, FOLLOWED BY R-BENDA REG...
     Route: 065
     Dates: start: 201004
  6. VINCRISTINE [Suspect]
     Active Substance: VINCRISTINE
     Indication: DIFFUSE LARGE B-CELL LYMPHOMA
     Dosage: 5 CYCLES AS A PART OF R-CHOP REGIMEN
     Route: 065
     Dates: start: 201004
  7. PREDNISONE. [Suspect]
     Active Substance: PREDNISONE
     Indication: DIFFUSE LARGE B-CELL LYMPHOMA
     Dosage: 5 CYCLES AS A PART OF R-CHOP REGIMEN
     Route: 065
     Dates: start: 201004
  8. DOXORUBICIN [Suspect]
     Active Substance: DOXORUBICIN
     Indication: DIFFUSE LARGE B-CELL LYMPHOMA
     Dosage: 5 CYCLES AS A PART OF R-CHOP REGIMEN
     Route: 065
     Dates: start: 201004

REACTIONS (6)
  - Post transplant lymphoproliferative disorder [Unknown]
  - Speech disorder [Unknown]
  - Diffuse large B-cell lymphoma [Unknown]
  - Progressive multifocal leukoencephalopathy [Fatal]
  - Hemiparesis [Unknown]
  - Apathy [Unknown]
